FAERS Safety Report 7847260-2 (Version None)
Quarter: 2011Q4

REPORT INFORMATION
  Report Type: 
  Country: None (occurrence: None)
  Receive Date: 20111025
  Receipt Date: 20111013
  Transmission Date: 20120403
  Serious: Yes (Hospitalization)
  Sender: FDA-Public Use
  Company Number: JP-TYCO HEALTHCARE/MALLINCKRODT-T201101918

PATIENT
  Sex: Male
  Weight: 43 kg

DRUGS (13)
  1. ETODOLAC [Concomitant]
     Dosage: 400 MG, BID
     Dates: start: 20090218
  2. LASIX [Concomitant]
     Dosage: 20 MG, QD
     Dates: start: 20110719
  3. DECADRON [Concomitant]
     Dosage: 16.5 MG/2 WEEKS
     Dates: start: 20110719
  4. ZANTAC                             /00550802/ [Concomitant]
     Dosage: 50 MG/2 WEEKS
     Dates: start: 20110719
  5. ATARAX [Suspect]
     Dosage: 25 MG/2 WEEKS
     Route: 042
     Dates: start: 20110719
  6. METHADONE HCL [Suspect]
     Dosage: 20 MG/TIME
     Dates: start: 20111001
  7. LEVOTHYROXINE SODIUM [Concomitant]
     Indication: HYPOTHYROIDISM
     Dosage: 150 UG, QD
     Dates: start: 20110609
  8. TAGAMET                            /00397401/ [Concomitant]
     Dosage: 800 MG, BID
     Dates: start: 20090218
  9. TAXOL [Concomitant]
     Dosage: 100 MG/2 WEEKS
     Dates: start: 20110719
  10. PROCHLORPERAZINE [Concomitant]
     Dosage: 10 MG, BID
     Dates: start: 20110622
  11. LENDORMIN [Concomitant]
     Dosage: .25 MG, QD
     Dates: start: 20110907
  12. METHADONE HCL [Suspect]
     Indication: CANCER PAIN
     Dosage: 15 MG, TID
     Route: 048
     Dates: start: 20101102, end: 20111001
  13. KYTRIL [Concomitant]
     Dosage: 3 MG/2 WEEKS
     Dates: start: 20110719

REACTIONS (2)
  - PANCREATIC CARCINOMA [None]
  - METASTASES TO LIVER [None]
